FAERS Safety Report 6188768-8 (Version None)
Quarter: 2009Q2

REPORT INFORMATION
  Report Type: 
  Country: None (occurrence: None)
  Receive Date: 20090513
  Receipt Date: 20090507
  Transmission Date: 20091009
  Serious: Yes (Hospitalization)
  Sender: FDA-Public Use
  Company Number: US-MERCK-0905USA00963

PATIENT
  Age: 90 Year
  Sex: Male

DRUGS (1)
  1. INVANZ [Suspect]
     Indication: PROPHYLAXIS
     Route: 042

REACTIONS (1)
  - CLOSTRIDIAL INFECTION [None]
